FAERS Safety Report 18519454 (Version 1)
Quarter: 2020Q4

REPORT INFORMATION
  Report Type: Report from Study
  Country: CO (occurrence: CO)
  Receive Date: 20201118
  Receipt Date: 20201118
  Transmission Date: 20210114
  Serious: Yes (Other)
  Sender: FDA-Public Use
  Company Number: CO-INCYTE CORPORATION-2017IN008665

PATIENT

DRUGS (6)
  1. JAKAVI [Suspect]
     Active Substance: RUXOLITINIB
     Dosage: 15 MG, Q12H (2 YEARS AGO)
     Route: 048
  2. FOLIC ACID. [Concomitant]
     Active Substance: FOLIC ACID
     Indication: PRODUCT USED FOR UNKNOWN INDICATION
     Dosage: UNK
     Route: 065
  3. JAKAVI [Suspect]
     Active Substance: RUXOLITINIB
     Dosage: 20 MG, Q12H
     Route: 048
  4. JAKAVI [Suspect]
     Active Substance: RUXOLITINIB
     Dosage: 15 MG, Q12H
     Route: 048
  5. ERYTHROPOIETIN [Concomitant]
     Active Substance: ERYTHROPOIETIN
     Indication: PRODUCT USED FOR UNKNOWN INDICATION
     Dosage: UNK
     Route: 065
  6. JAKAVI [Suspect]
     Active Substance: RUXOLITINIB
     Indication: MYELOFIBROSIS
     Dosage: 10 MG, TID (2 TABLETS OF 10MG IN THE MORNING AND 1 TABLET AT NIGHT)
     Route: 048
     Dates: start: 20170804

REACTIONS (8)
  - Platelet count increased [Unknown]
  - Inappropriate schedule of product administration [Unknown]
  - Deafness [Unknown]
  - Haematoma [Unknown]
  - Peripheral swelling [Unknown]
  - Gastritis [Unknown]
  - Product availability issue [Unknown]
  - Fatigue [Unknown]

NARRATIVE: CASE EVENT DATE: 20170804
